FAERS Safety Report 6602384-2 (Version None)
Quarter: 2010Q1

REPORT INFORMATION
  Report Type: 
  Country: None (occurrence: None)
  Receive Date: 20100225
  Receipt Date: 20100217
  Transmission Date: 20100710
  Serious: Yes (Hospitalization)
  Sender: FDA-Public Use
  Company Number: B0603720A

PATIENT
  Age: 87 Year
  Sex: Male
  Weight: 76 kg

DRUGS (1)
  1. ARIXTRA [Suspect]
     Indication: THROMBOSIS PROPHYLAXIS
     Dosage: 2.5MG PER DAY
     Route: 058
     Dates: start: 20090817, end: 20090907

REACTIONS (2)
  - OFF LABEL USE [None]
  - THROMBOCYTOPENIA [None]
